FAERS Safety Report 7801885-9 (Version None)
Quarter: 2011Q4

REPORT INFORMATION
  Report Type: 
  Country: None (occurrence: None)
  Receive Date: 20111007
  Receipt Date: 20111003
  Transmission Date: 20120403
  Serious: Yes (Death)
  Sender: FDA-Public Use
  Company Number: JP-SANOFI-AVENTIS-2011SA060199

PATIENT
  Age: 87 Year
  Sex: Male
  Weight: 54 kg

DRUGS (10)
  1. DOCETAXEL [Suspect]
     Dosage: STRENGTH: 20 MG/ML
     Route: 041
     Dates: start: 20110906
  2. NESPO [Concomitant]
     Route: 041
     Dates: start: 20110906
  3. ASPARA K [Concomitant]
     Route: 048
     Dates: start: 20110908
  4. ASPARA-CA [Concomitant]
     Route: 048
     Dates: start: 20110908
  5. LEUPROLIDE ACETATE [Concomitant]
     Indication: PROSTATE CANCER
     Dosage: FORM: AMPULE
     Route: 058
     Dates: start: 20110801
  6. ALOXI [Concomitant]
     Dosage: FORM: AMPOULE
     Route: 041
     Dates: start: 20110906
  7. ALL OTHER THERAPEUTIC PRODUCTS [Concomitant]
     Indication: PROSTATE CANCER
     Dosage: FORM: AMPOULE
     Route: 041
     Dates: start: 20110906
  8. DOCETAXEL [Suspect]
     Indication: PROSTATE CANCER
     Dosage: STRENGTH: 20 MG/ML
     Route: 041
     Dates: start: 20110906
  9. DEXAMETHASONE [Concomitant]
     Route: 041
     Dates: start: 20110906
  10. ELECTROLYTE SOLUTIONS [Concomitant]
     Route: 041
     Dates: start: 20110830, end: 20110908

REACTIONS (4)
  - LEUKOPENIA [None]
  - BONE MARROW FAILURE [None]
  - PNEUMONIA [None]
  - DISSEMINATED INTRAVASCULAR COAGULATION [None]
